FAERS Safety Report 7285283-5 (Version None)
Quarter: 2011Q1

REPORT INFORMATION
  Report Type: 
  Country: None (occurrence: None)
  Receive Date: 20110210
  Receipt Date: 20110201
  Transmission Date: 20110831
  Serious: Yes (Other)
  Sender: FDA-Public Use
  Company Number: FR-SANOFI-AVENTIS-2011SA006505

PATIENT
  Age: 56 Year
  Sex: Male

DRUGS (2)
  1. FLUINDIONE [Concomitant]
     Indication: ATRIAL FLUTTER
     Route: 048
  2. MULTAQ [Suspect]
     Indication: ATRIAL FLUTTER
     Route: 048
     Dates: start: 20101102, end: 20101215

REACTIONS (3)
  - CYTOLYTIC HEPATITIS [None]
  - ASPARTATE AMINOTRANSFERASE INCREASED [None]
  - ALANINE AMINOTRANSFERASE INCREASED [None]
